FAERS Safety Report 9242060 (Version 2)
Quarter: 2013Q2

REPORT INFORMATION
  Report Type: Report from Study
  Country: US (occurrence: US)
  Receive Date: 20130419
  Receipt Date: 20130425
  Transmission Date: 20140414
  Serious: Yes (Death)
  Sender: FDA-Public Use
  Company Number: US-ROCHE-1216233

PATIENT
  Sex: Female
  Weight: 81.72 kg

DRUGS (1)
  1. RITUXAN [Suspect]
     Indication: PLASMA CELL MYELOMA
     Route: 042
     Dates: start: 20110808, end: 20110808

REACTIONS (3)
  - Myocardial infarction [Fatal]
  - Hypertension [Fatal]
  - Plasma cell myeloma [Fatal]
